FAERS Safety Report 10169998 (Version 9)
Quarter: 2016Q1

REPORT INFORMATION
  Report Type: Report from Study
  Country: CA (occurrence: CA)
  Receive Date: 20140513
  Receipt Date: 20160211
  Transmission Date: 20160525
  Serious: Yes (Other)
  Sender: FDA-Public Use
  Company Number: CA-INCYTE CORPORATION-2014IN001238

PATIENT
  Age: 49 Year
  Sex: Female

DRUGS (6)
  1. NADOLOL. [Concomitant]
     Active Substance: NADOLOL
     Indication: PRODUCT USED FOR UNKNOWN INDICATION
     Dosage: UNK
  2. JAKAFI [Suspect]
     Active Substance: RUXOLITINIB
     Dosage: 20 MG, BID
     Route: 048
  3. JAKAFI [Suspect]
     Active Substance: RUXOLITINIB
     Indication: MYELOFIBROSIS
     Dosage: 20 MG, QD
     Route: 048
     Dates: start: 20121001
  4. NADOLOL. [Concomitant]
     Active Substance: NADOLOL
     Route: 065
  5. IRON [Concomitant]
     Active Substance: IRON
     Indication: PRODUCT USED FOR UNKNOWN INDICATION
  6. IRON [Concomitant]
     Active Substance: IRON
     Route: 065

REACTIONS (25)
  - Mental disorder [Unknown]
  - Weight increased [Unknown]
  - Rash [Not Recovered/Not Resolved]
  - Rash pruritic [Unknown]
  - Migraine [Recovering/Resolving]
  - Pain [Unknown]
  - Skin tightness [Unknown]
  - Acne [Unknown]
  - Lactose intolerance [Unknown]
  - Sinusitis [Unknown]
  - Mass [Unknown]
  - Gastric disorder [Unknown]
  - Full blood count decreased [Unknown]
  - Dysphagia [Unknown]
  - Skin disorder [Unknown]
  - Erythema [Unknown]
  - Dizziness [Unknown]
  - Fluid retention [Unknown]
  - Peripheral swelling [Unknown]
  - Gastrointestinal haemorrhage [Unknown]
  - Feeling abnormal [Unknown]
  - Blister [Unknown]
  - Fatigue [Unknown]
  - Diarrhoea [Unknown]
  - Headache [Not Recovered/Not Resolved]

NARRATIVE: CASE EVENT DATE: 201505
